FAERS Safety Report 4274530-X (Version None)
Quarter: 2004Q1

REPORT INFORMATION
  Report Type: 
  Country: None (occurrence: None)
  Receive Date: 20040120
  Receipt Date: 20031203
  Transmission Date: 20041129
  Serious: Yes (Other)
  Sender: FDA-Public Use
  Company Number: US-ROCHE-353297

PATIENT
  Age: 21 Year
  Sex: Female

DRUGS (2)
  1. ACCUTANE [Suspect]
     Indication: DRUG USE FOR UNKNOWN INDICATION
     Route: 048
     Dates: start: 20020906, end: 20021206
  2. BIRTH CONTROL PILL [Concomitant]
     Route: 048
     Dates: end: 20021001

REACTIONS (2)
  - DEPRESSION [None]
  - SUICIDAL IDEATION [None]
